FAERS Safety Report 7267711 (Version 7)
Quarter: 2020Q3

REPORT INFORMATION
  Report Type: Report from Study
  Country: CA (occurrence: CA)
  Receive Date: 20100201
  Receipt Date: 20100510
  Transmission Date: 20201105
  Serious: Yes (Other)
  Sender: FDA-Public Use
  Company Number: CA-WYE-H13135210

PATIENT
  Age: 56 Year
  Sex: Female
  Weight: 61 kg

DRUGS (13)
  1. PERINDOPRIL [Concomitant]
     Active Substance: PERINDOPRIL
     Indication: HYPERTENSION
     Dosage: UNKNOWN
     Dates: start: 20091006
  2. ASCORBIC ACID\ERGOCALCIFEROL\FOLIC ACID\PANTHENOL\RETINOL\RIBOFLAVIN\THIAMINE HYDROCHLORIDE [Concomitant]
     Active Substance: ASCORBIC ACID\ERGOCALCIFEROL\FOLIC ACID\PANTHENOL\RETINOL\RIBOFLAVIN\THIAMINE HYDROCHLORIDE
     Dosage: UNKNOWN
  3. CALCIUM [Concomitant]
     Active Substance: CALCIUM
     Dosage: UNKNOWN
  4. SORAFENIB [Suspect]
     Active Substance: SORAFENIB
     Indication: RENAL CELL CARCINOMA
     Route: 048
     Dates: start: 20090922, end: 20100111
  5. METOPROLOL. [Concomitant]
     Active Substance: METOPROLOL
     Indication: HYPERTENSION
     Dosage: UNKNOWN
     Dates: start: 20100113
  6. POTASSIUM [Concomitant]
     Active Substance: POTASSIUM
     Dosage: UNKNOWN
  7. OMEGA?3 TRIGLYCERIDES [Concomitant]
     Dosage: UNKNOWN
  8. TYLENOL [Concomitant]
     Active Substance: ACETAMINOPHEN
     Dosage: AS NEEDED
  9. METAMUCIL [Concomitant]
     Active Substance: PLANTAGO SEED
     Dosage: AS NEEDED
  10. ASCORBIC ACID. [Concomitant]
     Active Substance: ASCORBIC ACID
     Dosage: UNKNOWN
  11. ADALAT [Concomitant]
     Active Substance: NIFEDIPINE
     Indication: HYPERTENSION
     Dosage: UNKNOWN
  12. ERGOCALCIFEROL. [Concomitant]
     Active Substance: ERGOCALCIFEROL
     Dosage: UNKNOWN
  13. LEVOTHYROXINE. [Concomitant]
     Active Substance: LEVOTHYROXINE
     Indication: HYPOTHYROIDISM
     Dosage: UNKNOWN
     Dates: start: 20040808

REACTIONS (1)
  - Retinal artery occlusion [Recovered/Resolved with Sequelae]

NARRATIVE: CASE EVENT DATE: 20100111
